FAERS Safety Report 12417816 (Version 1)
Quarter: 2016Q2

REPORT INFORMATION
  Report Type: Spontaneous
  Country: US (occurrence: US)
  Receive Date: 20160530
  Receipt Date: 20160530
  Transmission Date: 20160815
  Serious: No
  Sender: FDA-Public Use
  Company Number: US-APOTEX-2016AP006960

PATIENT
  Age: 51 Year
  Sex: Female

DRUGS (3)
  1. HYDROXYCHLOROQUINE [Concomitant]
     Active Substance: HYDROXYCHLOROQUINE
     Indication: CUTANEOUS SARCOIDOSIS
     Dosage: 200 MG, BID
     Route: 048
  2. IMIQUIMOD. [Suspect]
     Active Substance: IMIQUIMOD
     Indication: CUTANEOUS SARCOIDOSIS
     Dosage: 5% CREAM 3 TIMES A WEEK
     Route: 061
  3. IMIQUIMOD. [Suspect]
     Active Substance: IMIQUIMOD
     Dosage: 5% CREAM ONCE WEEKLY

REACTIONS (1)
  - Skin irritation [Unknown]
